FAERS Safety Report 21917715 (Version 1)
Quarter: 2023Q1

REPORT INFORMATION
  Report Type: Spontaneous
  Country: US (occurrence: US)
  Receive Date: 20230127
  Receipt Date: 20230127
  Transmission Date: 20230418
  Serious: No
  Sender: FDA-Public Use
  Company Number: US-AMGEN-USASP2023013261

PATIENT
  Sex: Female

DRUGS (4)
  1. OTEZLA [Suspect]
     Active Substance: APREMILAST
     Indication: Psoriatic arthropathy
     Dosage: 30 MILLIGRAM, BID
     Route: 048
     Dates: start: 20150807
  2. FAMVIR [Concomitant]
     Active Substance: FAMCICLOVIR
     Dosage: 250 MILLIGRAM
     Route: 065
  3. FLEXERIL [Concomitant]
     Active Substance: CYCLOBENZAPRINE HYDROCHLORIDE
     Dosage: 10 MILLIGRAM
     Route: 065
  4. DEXTROSE [Concomitant]
     Active Substance: DEXTROSE
     Dosage: 500- 400
     Route: 065

REACTIONS (3)
  - Therapy non-responder [Unknown]
  - Infection [Unknown]
  - Abdominal pain upper [Unknown]
